FAERS Safety Report 24548678 (Version 2)
Quarter: 2024Q4

REPORT INFORMATION
  Report Type: Spontaneous
  Country: US (occurrence: US)
  Receive Date: 20241025
  Receipt Date: 20241219
  Transmission Date: 20250115
  Serious: No
  Sender: VIIV
  Company Number: US-ViiV Healthcare-117419

PATIENT
  Age: 52 Year
  Sex: Male

DRUGS (6)
  1. CABOTEGRAVIR [Suspect]
     Active Substance: CABOTEGRAVIR
     Indication: Product used for unknown indication
     Dosage: UNK
  2. CABOTEGRAVIR [Suspect]
     Active Substance: CABOTEGRAVIR
  3. CABOTEGRAVIR [Suspect]
     Active Substance: CABOTEGRAVIR
  4. CABENUVA [Suspect]
     Active Substance: CABOTEGRAVIR\RILPIVIRINE
     Indication: Product used for unknown indication
     Dosage: UNK (400MG/600MG)
  5. CABENUVA [Suspect]
     Active Substance: CABOTEGRAVIR\RILPIVIRINE
  6. CABENUVA [Suspect]
     Active Substance: CABOTEGRAVIR\RILPIVIRINE

REACTIONS (2)
  - Wrong product administered [Unknown]
  - Product complaint [Unknown]
